FAERS Safety Report 21833172 (Version 1)
Quarter: 2023Q1

REPORT INFORMATION
  Report Type: Report from Study
  Country: US (occurrence: US)
  Receive Date: 20230106
  Receipt Date: 20230106
  Transmission Date: 20230418
  Serious: Yes (Other)
  Sender: FDA-Public Use
  Company Number: US-HORIZON THERAPEUTICS-HZN-2022-009675

PATIENT

DRUGS (3)
  1. TEPEZZA [Suspect]
     Active Substance: TEPROTUMUMAB-TRBW
     Indication: Endocrine ophthalmopathy
     Dosage: FIRST INFUSION
     Route: 042
     Dates: start: 20221208
  2. TEPEZZA [Suspect]
     Active Substance: TEPROTUMUMAB-TRBW
     Dosage: SECOND INFUSION
     Route: 042
     Dates: start: 2022
  3. CLONIDINE [Concomitant]
     Active Substance: CLONIDINE
     Indication: Product used for unknown indication
     Dosage: 1 DOSAGE FORM, QID
     Route: 048
     Dates: start: 202212

REACTIONS (9)
  - Blood glucose increased [Unknown]
  - Hypertension [Recovering/Resolving]
  - Abdominal pain upper [Unknown]
  - Dizziness [Recovering/Resolving]
  - Vomiting [Recovering/Resolving]
  - Taste disorder [Recovering/Resolving]
  - Fatigue [Recovered/Resolved]
  - Diarrhoea [Recovered/Resolved]
  - Limb discomfort [Recovering/Resolving]

NARRATIVE: CASE EVENT DATE: 20221201
